FAERS Safety Report 8144675-2 (Version None)
Quarter: 2012Q1

REPORT INFORMATION
  Report Type: 
  Country: None (occurrence: None)
  Receive Date: 20120217
  Receipt Date: 20120208
  Transmission Date: 20120608
  Serious: No
  Sender: FDA-Public Use
  Company Number: CA-JNJFOC-20120205273

PATIENT
  Age: 87 Year
  Sex: Male

DRUGS (1)
  1. DURAGESIC-12 [Suspect]
     Indication: PRODUCT USED FOR UNKNOWN INDICATION
     Route: 062

REACTIONS (1)
  - TREATMENT NONCOMPLIANCE [None]
